FAERS Safety Report 16940616 (Version 2)
Quarter: 2019Q4

REPORT INFORMATION
  Report Type: Report from Study
  Country: AU (occurrence: AU)
  Receive Date: 20191021
  Receipt Date: 20191209
  Transmission Date: 20200122
  Serious: Yes (Death, Hospitalization, Other)
  Sender: FDA-Public Use
  Company Number: PHHY2019AU112880

PATIENT
  Age: 52 Year
  Sex: Male
  Weight: 76 kg

DRUGS (4)
  1. PREDNISOLONE. [Suspect]
     Active Substance: PREDNISOLONE
     Indication: GRAFT VERSUS HOST DISEASE
     Dosage: 9 MG, QD
     Route: 065
     Dates: start: 201608, end: 20190910
  2. JAKAVI [Suspect]
     Active Substance: RUXOLITINIB
     Indication: GRAFT VERSUS HOST DISEASE
     Dosage: 5 MG, BID
     Route: 048
     Dates: start: 20190520, end: 20191002
  3. PANTOPRAZOLE [Suspect]
     Active Substance: PANTOPRAZOLE
     Indication: ANTACID THERAPY
     Dosage: 40 MG, QD
     Route: 065
     Dates: start: 2016, end: 20190910
  4. METHYLPREDNISOLONE. [Suspect]
     Active Substance: METHYLPREDNISOLONE
     Indication: PRODUCT USED FOR UNKNOWN INDICATION
     Dosage: 20 MG/KG, QD
     Route: 065

REACTIONS (7)
  - Diarrhoea [Fatal]
  - Liver injury [Fatal]
  - Hepatic failure [Unknown]
  - Hypoxia [Fatal]
  - Multiple organ dysfunction syndrome [Fatal]
  - Clostridium difficile colitis [Fatal]
  - Sepsis [Fatal]

NARRATIVE: CASE EVENT DATE: 20190910
